FAERS Safety Report 4597061-6 (Version None)
Quarter: 2005Q1

REPORT INFORMATION
  Report Type: 
  Country: None (occurrence: None)
  Receive Date: 20050301
  Receipt Date: 20050121
  Transmission Date: 20050727
  Serious: Yes (Other)
  Sender: FDA-Public Use
  Company Number: C-05-0004

PATIENT
  Age: 4 Year
  Sex: Female
  Weight: 19.0511 kg

DRUGS (2)
  1. PREDNISOLONE SODIUM PHOSPHATE ORAL SOLUTION, 15MG/5ML, MGP [Suspect]
     Indication: COUGH
     Dosage: 2 TEASPOON ORALLY, TAKEN
     Route: 048
     Dates: start: 20050121
  2. PREDNISOLONE SODIUM PHOSPHATE ORAL SOLUTION, 15MG/5ML, MGP [Suspect]
     Indication: CROUP INFECTIOUS
     Dosage: 2 TEASPOON ORALLY, TAKEN
     Route: 048
     Dates: start: 20050121

REACTIONS (3)
  - DYSPHAGIA [None]
  - GASTROOESOPHAGEAL REFLUX DISEASE [None]
  - STOMATITIS [None]
